FAERS Safety Report 5406865-9 (Version None)
Quarter: 2007Q3

REPORT INFORMATION
  Report Type: 
  Country: None (occurrence: None)
  Receive Date: 20070807
  Receipt Date: 20070723
  Transmission Date: 20080115
  Serious: Yes (Disabling)
  Sender: FDA-Public Use
  Company Number: PT-ELI_LILLY_AND_COMPANY-PT200707004845

PATIENT
  Age: 61 Year
  Sex: Female

DRUGS (5)
  1. DULOXETINE HYDROCHLORIDE [Suspect]
     Indication: DEPRESSION
     Dosage: 60 MG, DAILY (1/D)
     Route: 048
     Dates: start: 20070109, end: 20070529
  2. DULOXETINE HYDROCHLORIDE [Suspect]
     Dosage: 60 MG, 2/D
     Route: 048
     Dates: start: 20070529
  3. DIAZEPAM [Concomitant]
     Indication: DEPRESSION
     Dosage: UNK, 2/D
     Route: 048
     Dates: start: 20070109
  4. TRAZODONE HYDROCHLORIDE [Concomitant]
     Indication: DEPRESSION
     Dosage: 150 MG, UNKNOWN
     Route: 048
     Dates: start: 20070109
  5. TRAZODONE HYDROCHLORIDE [Concomitant]
     Dosage: 50 MG, EACH EVENING
     Route: 048
     Dates: start: 20070109

REACTIONS (1)
  - DRUG TOXICITY [None]
